FAERS Safety Report 9894501 (Version 2)
Quarter: 2014Q1

REPORT INFORMATION
  Report Type: Spontaneous
  Country: BR (occurrence: BR)
  Receive Date: 20140213
  Receipt Date: 20140312
  Transmission Date: 20141002
  Serious: Yes (Hospitalization, Other)
  Sender: FDA-Public Use
  Company Number: PHHY2014BR016915

PATIENT
  Age: 58 Year
  Sex: Male
  Weight: 66 kg

DRUGS (8)
  1. TRILEPTAL [Suspect]
     Indication: CONVULSION
     Dosage: 3 DF, DAILY
     Route: 048
     Dates: start: 2011
  2. LAMOTRIGINE [Concomitant]
     Indication: CONVULSION
     Dosage: 1 DF, DAILY (WITH TRILEPTAL)
     Route: 048
     Dates: start: 2013
  3. MESALAZINE [Concomitant]
     Indication: CROHN^S DISEASE
     Dosage: 4 DF, DAILY
     Route: 048
  4. LUMIGAN [Concomitant]
     Indication: INTRAOCULAR PRESSURE TEST ABNORMAL
     Dosage: 1 DF, DAILY
     Route: 048
  5. ATORVASTATIN [Concomitant]
     Indication: CARDIAC DISORDER
     Dosage: 1 DF, DAILY
     Route: 048
     Dates: start: 2013
  6. CARVEDILOL [Concomitant]
     Indication: CARDIAC DISORDER
     Dosage: 2 DF, DAILY
     Route: 048
     Dates: start: 2013
  7. ASPIRINA PREVENT [Concomitant]
     Indication: CARDIAC DISORDER
     Dosage: 1 DF, DAILY
     Route: 048
     Dates: start: 2013
  8. ATENOLOL [Concomitant]
     Indication: CARDIAC DISORDER
     Dosage: 1 DF, DAILY
     Route: 048
     Dates: start: 2013

REACTIONS (4)
  - Infarction [Recovered/Resolved]
  - Ileus paralytic [Recovered/Resolved]
  - Speech disorder [Unknown]
  - Convulsion [Recovered/Resolved]
